FAERS Safety Report 9878790 (Version 1)
Quarter: 2014Q1

REPORT INFORMATION
  Report Type: Spontaneous
  Country: CO (occurrence: CO)
  Receive Date: 20140206
  Receipt Date: 20140206
  Transmission Date: 20141002
  Serious: Yes (Death)
  Sender: FDA-Public Use
  Company Number: CO-VIIV HEALTHCARE LIMITED-A1059764A

PATIENT
  Sex: Male
  Weight: 62 kg

DRUGS (1)
  1. CELSENTRI [Suspect]
     Indication: HIV INFECTION
     Dosage: 150MG TWICE PER DAY
     Route: 048
     Dates: start: 20120901, end: 20131201

REACTIONS (4)
  - Disease progression [Fatal]
  - Disease complication [Fatal]
  - Swelling [Unknown]
  - Dyspnoea [Unknown]
